FAERS Safety Report 11749315 (Version 1)
Quarter: 2015Q4

REPORT INFORMATION
  Report Type: Spontaneous
  Country: US (occurrence: None)
  Receive Date: 20151117
  Receipt Date: 20151117
  Transmission Date: 20160304
  Serious: Yes (Disabling)
  Sender: FDA-Public Use
  Company Number: None

PATIENT
  Age: 56 Year
  Sex: Female
  Weight: 50.8 kg

DRUGS (2)
  1. AMOXICILLIN. [Suspect]
     Active Substance: AMOXICILLIN
     Indication: DENTAL IMPLANTATION
     Route: 048
     Dates: start: 20151113, end: 20151114
  2. ESTROGENS + PROGESTERONE [Concomitant]

REACTIONS (5)
  - Nasal congestion [None]
  - Influenza like illness [None]
  - Fatigue [None]
  - Migraine [None]
  - Headache [None]

NARRATIVE: CASE EVENT DATE: 20151113
